FAERS Safety Report 25984475 (Version 2)
Quarter: 2025Q4

REPORT INFORMATION
  Report Type: Spontaneous
  Country: US (occurrence: US)
  Receive Date: 20251031
  Receipt Date: 20251111
  Transmission Date: 20260118
  Serious: No
  Sender: VERTEX
  Company Number: US-VERTEX PHARMACEUTICALS-2025-017990

PATIENT
  Age: 38 Year
  Sex: Female

DRUGS (2)
  1. JOURNAVX [Suspect]
     Active Substance: SUZETRIGINE
     Indication: Pain
     Dosage: FIRST DOSE WITH TWO PILLS (LOADING DOSE)
     Route: 048
     Dates: start: 202509
  2. JOURNAVX [Suspect]
     Active Substance: SUZETRIGINE
     Dosage: DOSE DECREASED
     Route: 048
     Dates: start: 2025

REACTIONS (4)
  - Nausea [Unknown]
  - Loss of bladder sensation [Recovered/Resolved]
  - Pruritus [Unknown]
  - Hyperaesthesia [Recovered/Resolved]

NARRATIVE: CASE EVENT DATE: 20250101
